FAERS Safety Report 19671043 (Version 1)
Quarter: 2021Q3

REPORT INFORMATION
  Report Type: Other
  Country: IN (occurrence: IN)
  Receive Date: 20210806
  Receipt Date: 20210806
  Transmission Date: 20211014
  Serious: Yes (Other)
  Sender: FDA-Public Use
  Company Number: IN-B.BRAUN MEDICAL INC.-2114746

PATIENT
  Age: 61 Year
  Sex: Female

DRUGS (3)
  1. FUROSEMIDE. [Concomitant]
     Active Substance: FUROSEMIDE
     Route: 042
  2. CEFEPIME HYDROCHLORIDE AND DEXTROSE [Suspect]
     Active Substance: CEFEPIME HYDROCHLORIDE
     Route: 042
  3. TAZOBACTAM [Concomitant]
     Active Substance: TAZOBACTAM
     Route: 042

REACTIONS (3)
  - Irritability [None]
  - Vomiting [None]
  - Seizure [None]
